FAERS Safety Report 13552091 (Version 1)
Quarter: 2017Q2

REPORT INFORMATION
  Report Type: Spontaneous
  Country: IT (occurrence: IT)
  Receive Date: 20170516
  Receipt Date: 20170516
  Transmission Date: 20170830
  Serious: Yes (Other)
  Sender: FDA-Public Use
  Company Number: IT-MYLANLABS-2017M1029328

PATIENT

DRUGS (1)
  1. CLOPIDOGREL MYLAN GENERICS 75 MG COMPRESSE RIVESTITE CON FILM [Suspect]
     Active Substance: CLOPIDOGREL BISULFATE
     Indication: PRODUCT USED FOR UNKNOWN INDICATION
     Dosage: UNK

REACTIONS (1)
  - Macroglossia [Unknown]

NARRATIVE: CASE EVENT DATE: 20161103
